FAERS Safety Report 9793221 (Version 1)
Quarter: 2013Q4

REPORT INFORMATION
  Report Type: Spontaneous
  Country: AU (occurrence: None)
  Receive Date: 20131230
  Receipt Date: 20131230
  Transmission Date: 20140711
  Serious: Yes (Hospitalization, Disabling)
  Sender: FDA-Public Use
  Company Number: IPC201312-000534

PATIENT
  Age: 56 Year
  Sex: Female

DRUGS (4)
  1. WARFARIN [Suspect]
     Indication: ANTICOAGULANT THERAPY
  2. HEPARIN [Suspect]
     Indication: ANTICOAGULANT THERAPY
  3. RETEPLASE [Suspect]
     Indication: THROMBOLYSIS
  4. ADRENALINE (ADRENALINE) [Concomitant]

REACTIONS (3)
  - Blindness [None]
  - Disorder of orbit [None]
  - Haematoma [None]
